FAERS Safety Report 10957988 (Version 2)
Quarter: 2015Q2

REPORT INFORMATION
  Report Type: Spontaneous
  Country: US (occurrence: US)
  Receive Date: 20150326
  Receipt Date: 20150402
  Transmission Date: 20150821
  Serious: No
  Sender: FDA-Public Use
  Company Number: US-PFIZER INC-2015100984

PATIENT
  Age: 62 Year
  Sex: Female
  Weight: 66 kg

DRUGS (1)
  1. IBRANCE [Suspect]
     Active Substance: PALBOCICLIB
     Indication: BREAST CANCER FEMALE
     Dosage: 125 MG, DAILY
     Dates: start: 20150312

REACTIONS (6)
  - Epistaxis [Unknown]
  - Rhinorrhoea [Unknown]
  - Nausea [Unknown]
  - Lacrimation increased [Unknown]
  - Feeling abnormal [Unknown]
  - Depression [Unknown]

NARRATIVE: CASE EVENT DATE: 2015
